FAERS Safety Report 11895468 (Version 1)
Quarter: 2016Q1

REPORT INFORMATION
  Report Type: Spontaneous
  Country: KR (occurrence: KR)
  Receive Date: 20160107
  Receipt Date: 20160107
  Transmission Date: 20160526
  Serious: Yes (Hospitalization)
  Sender: FDA-Public Use
  Company Number: KR-AMGEN-KORCT2015141059

PATIENT
  Age: 49 Year
  Sex: Male
  Weight: 76.2 kg

DRUGS (8)
  1. BONKY [Concomitant]
     Dosage: 3 DF, QOD
     Route: 048
     Dates: start: 20141126
  2. FEROBA U [Concomitant]
     Dosage: 2 DF, UNK
     Route: 048
     Dates: start: 20070421
  3. TWYNSTA [Concomitant]
     Active Substance: AMLODIPINE BESYLATE\TELMISARTAN
     Dosage: 1 DF (10/40MG), UNK
     Route: 048
     Dates: start: 20140228
  4. RENALMIN [Concomitant]
     Dosage: 1 TAB
     Route: 048
     Dates: start: 20140228
  5. NESP [Concomitant]
     Active Substance: DARBEPOETIN ALFA
     Indication: PRODUCT USED FOR UNKNOWN INDICATION
     Dosage: 60 MUG, UNK
     Route: 058
     Dates: start: 20100914
  6. DILATREND [Concomitant]
     Active Substance: CARVEDILOL
     Dosage: 25 MG, UNK
     Route: 048
     Dates: start: 20130828
  7. REGPARA [Suspect]
     Active Substance: CINACALCET HYDROCHLORIDE
     Indication: HYPERPARATHYROIDISM SECONDARY
     Dosage: 50 MG, QD
     Route: 048
     Dates: start: 20150610
  8. RENAGEL [Concomitant]
     Active Substance: SEVELAMER HYDROCHLORIDE
     Dosage: 6 DF, UNK
     Route: 048
     Dates: start: 20100406

REACTIONS (2)
  - Peritonitis [Recovered/Resolved]
  - Infarction [Recovered/Resolved]

NARRATIVE: CASE EVENT DATE: 20150930
